FAERS Safety Report 15638810 (Version 1)
Quarter: 2018Q4

REPORT INFORMATION
  Report Type: Spontaneous
  Country: US (occurrence: US)
  Receive Date: 20181120
  Receipt Date: 20181120
  Transmission Date: 20190205
  Serious: No
  Sender: FDA-Public Use
  Company Number: US-PERRIGO-18US004753

PATIENT
  Sex: Male
  Weight: 77.98 kg

DRUGS (4)
  1. MAGNESIUM [Concomitant]
     Active Substance: MAGNESIUM
     Indication: CONSTIPATION
     Dosage: 40 MG, PRN
     Route: 048
     Dates: start: 2018
  2. CITRUCEL [Concomitant]
     Active Substance: METHYLCELLULOSE (4000 MPA.S)
     Indication: CONSTIPATION
     Dosage: 15 ML, PRN
     Route: 048
     Dates: start: 2017
  3. POLYETHYLENE GLYCOL 3350. [Suspect]
     Active Substance: POLYETHYLENE GLYCOL 3350
     Indication: CONSTIPATION
     Dosage: 34 G, QD, PRN
     Route: 048
     Dates: start: 2017
  4. MEMANTINE. [Concomitant]
     Active Substance: MEMANTINE
     Indication: AMNESIA
     Dosage: 2 TABLETS, QHS
     Route: 048
     Dates: start: 2017

REACTIONS (3)
  - Incorrect dose administered [Not Recovered/Not Resolved]
  - Drug effect variable [Unknown]
  - Wrong technique in product usage process [Unknown]

NARRATIVE: CASE EVENT DATE: 2017
